FAERS Safety Report 15983198 (Version 1)
Quarter: 2019Q1

REPORT INFORMATION
  Report Type: Spontaneous
  Country: NL (occurrence: NL)
  Receive Date: 20190220
  Receipt Date: 20190220
  Transmission Date: 20190418
  Serious: Yes (Other)
  Sender: FDA-Public Use
  Company Number: NL-TEVA-2019-NL-1013454

PATIENT
  Age: 63 Year
  Sex: Female
  Weight: 73 kg

DRUGS (3)
  1. ENALAPRILMALEAAT 5MG [Concomitant]
  2. HYDROCHLOORTHIAZIDE 12,5 MG [Suspect]
     Active Substance: HYDROCHLOROTHIAZIDE
     Indication: HYPERTENSION
     Dosage: 1 DOSAGE FORMS DAILY; 1X D
     Route: 065
     Dates: start: 201009, end: 201901
  3. EZETROL DAARNA EZETIMIBE 10MG [Concomitant]

REACTIONS (1)
  - Basal cell carcinoma [Unknown]

NARRATIVE: CASE EVENT DATE: 201208
